FAERS Safety Report 4755572-4 (Version None)
Quarter: 2005Q3

REPORT INFORMATION
  Report Type: 
  Country: None (occurrence: None)
  Receive Date: 20050830
  Receipt Date: 20050520
  Transmission Date: 20060218
  Serious: Yes (Life-Threatening, Hospitalization)
  Sender: FDA-Public Use
  Company Number: US-BRISTOL-MYERS SQUIBB COMPANY-12975991

PATIENT
  Age: 34 Year
  Sex: Male
  Weight: 112 kg

DRUGS (7)
  1. ABILIFY [Suspect]
     Indication: SCHIZOPHRENIA
     Dates: start: 20040501, end: 20050513
  2. METFORMIN HCL XR TABS 500 MG [Concomitant]
  3. LIPITOR [Concomitant]
  4. NEXIUM [Concomitant]
  5. COUMADIN [Concomitant]
     Dosage: ON SUNDAY, TUESDAY, THURSDAY, AND SATURDAY
  6. COUMADIN [Concomitant]
     Dosage: ON MONDAY, WEDNESDAY, AND FRIDAY
  7. MECLIZINE HCL [Concomitant]

REACTIONS (2)
  - PANCREATITIS ACUTE [None]
  - RESPIRATORY FAILURE [None]
